FAERS Safety Report 7327933-0 (Version None)
Quarter: 2011Q1

REPORT INFORMATION
  Report Type: 
  Country: None (occurrence: None)
  Receive Date: 20110218
  Receipt Date: 20110203
  Transmission Date: 20110831
  Serious: No
  Sender: FDA-Public Use
  Company Number: SPI201100027

PATIENT
  Sex: Female

DRUGS (2)
  1. AMITIZA [Suspect]
     Indication: IRRITABLE BOWEL SYNDROME
     Dosage: 8 MCG, BID, ORAL
     Route: 048
     Dates: start: 20110203
  2. AMITIZA [Suspect]
     Indication: CONSTIPATION
     Dosage: 8 MCG, BID, ORAL
     Route: 048
     Dates: start: 20110203

REACTIONS (3)
  - INCORRECT DOSE ADMINISTERED [None]
  - ASTHENIA [None]
  - CHEST DISCOMFORT [None]
